FAERS Safety Report 6379285-0 (Version None)
Quarter: 2009Q3

REPORT INFORMATION
  Report Type: 
  Country: None (occurrence: None)
  Receive Date: 20090928
  Receipt Date: 20090922
  Transmission Date: 20100115
  Serious: Yes (Death, Other)
  Sender: FDA-Public Use
  Company Number: US-ASTRAZENECA-2009SE14892

PATIENT
  Age: 81 Year
  Sex: Male

DRUGS (4)
  1. SEROQUEL [Suspect]
     Route: 048
  2. BLOOD PRESSURE MEDICATION [Concomitant]
  3. ARICEPT [Concomitant]
  4. ATIVAN [Concomitant]

REACTIONS (6)
  - ABASIA [None]
  - ASPIRATION [None]
  - DEATH [None]
  - PYREXIA [None]
  - TONGUE PARALYSIS [None]
  - TREMOR [None]
